FAERS Safety Report 12647069 (Version 1)
Quarter: 2016Q3

REPORT INFORMATION
  Report Type: Spontaneous
  Country: US (occurrence: US)
  Receive Date: 20160812
  Receipt Date: 20160812
  Transmission Date: 20161109
  Serious: No
  Sender: FDA-Public Use
  Company Number: US-BAYER-2016-147208

PATIENT
  Age: 66 Year
  Sex: Male
  Weight: 70.75 kg

DRUGS (4)
  1. NIDAZOLE [Concomitant]
     Dosage: UNK
  2. REVIVE [Concomitant]
     Indication: DYSPEPSIA
     Dosage: UNK UNK, QD (WITH WATER)
  3. MIRALAX [Suspect]
     Active Substance: POLYETHYLENE GLYCOL 3350
     Indication: CONSTIPATION
     Dosage: 1 DF, UNK
     Route: 048
  4. CIPROFLOXACIN. [Concomitant]
     Active Substance: CIPROFLOXACIN
     Dosage: UNK UNK, BIW

REACTIONS (3)
  - Constipation [Not Recovered/Not Resolved]
  - Product use issue [None]
  - Drug ineffective [None]

NARRATIVE: CASE EVENT DATE: 201607
